FAERS Safety Report 6624063-8 (Version None)
Quarter: 2010Q1

REPORT INFORMATION
  Report Type: 
  Country: None (occurrence: None)
  Receive Date: 20100310
  Receipt Date: 20100226
  Transmission Date: 20100710
  Serious: Yes (Hospitalization, Other)
  Sender: FDA-Public Use
  Company Number: FR-WYE-H13869610

PATIENT
  Age: 74 Year
  Sex: Male

DRUGS (4)
  1. CORDARONE [Suspect]
     Dosage: DOSE UNKNOWN
     Route: 065
     Dates: start: 20090703
  2. PREVISCAN [Concomitant]
     Dosage: DOSE UNKNOWN
     Route: 065
     Dates: start: 20070101
  3. KARDEGIC [Concomitant]
     Dosage: DOSE UNKNOWN
     Route: 065
  4. TAHOR [Concomitant]
     Dosage: DOSE UNKNOWN
     Route: 065
     Dates: start: 20050101

REACTIONS (3)
  - CARDIAC TAMPONADE [None]
  - CEREBELLAR SYNDROME [None]
  - VIRAL PERICARDITIS [None]
